FAERS Safety Report 6152019-0 (Version None)
Quarter: 2009Q2

REPORT INFORMATION
  Report Type: 
  Country: None (occurrence: None)
  Receive Date: 20090410
  Receipt Date: 20090402
  Transmission Date: 20091009
  Serious: Yes (Other)
  Sender: FDA-Public Use
  Company Number: PHHY2009DE09937

PATIENT
  Sex: Female
  Weight: 77 kg

DRUGS (7)
  1. RASILEZ [Suspect]
     Indication: HYPERTENSION
     Dosage: 1 DF, QD
     Dates: start: 20071206, end: 20071211
  2. RASILEZ [Suspect]
     Dosage: 1 DF, QD
     Dates: start: 20080501, end: 20080501
  3. MICARDIS [Concomitant]
     Indication: HYPERTENSION
     Dosage: 80 MG, UNK
  4. DELIX [Concomitant]
     Indication: HYPERTENSION
     Dosage: 10 MG, UNK
  5. DISALUNIL [Concomitant]
     Indication: HYPERTENSION
     Dosage: 25 MG, UNK
  6. NORVASC [Concomitant]
     Indication: HYPERTENSION
     Dosage: 10 MG, UNK
  7. VIANI [Concomitant]
     Indication: ASTHMA
     Dosage: 50250 UG, UNK

REACTIONS (7)
  - ATRIAL FIBRILLATION [None]
  - CHEST DISCOMFORT [None]
  - DIZZINESS [None]
  - HEART RATE INCREASED [None]
  - PALPITATIONS [None]
  - SOMNOLENCE [None]
  - TACHYARRHYTHMIA [None]
